FAERS Safety Report 5892145-4 (Version None)
Quarter: 2008Q3

REPORT INFORMATION
  Report Type: 
  Country: None (occurrence: None)
  Receive Date: 20080908
  Receipt Date: 20080523
  Transmission Date: 20090109
  Serious: No
  Sender: FDA-Public Use
  Company Number: 002#2#2008-00465

PATIENT
  Age: 50 Year
  Sex: Female
  Weight: 58.9676 kg

DRUGS (7)
  1. NEUPRO [Suspect]
     Indication: PARKINSON'S DISEASE
     Dosage: 2MG/24H, 1 IN 1 D, TRANSDERMAL : 4MG/24H, 1 IN 1 D, TRANSDERMAL : 10MG/24H, 1 IN 1 D, TRANSDERMAL
     Route: 062
     Dates: start: 20071107, end: 20071123
  2. NEUPRO [Suspect]
     Indication: PARKINSON'S DISEASE
     Dosage: 2MG/24H, 1 IN 1 D, TRANSDERMAL : 4MG/24H, 1 IN 1 D, TRANSDERMAL : 10MG/24H, 1 IN 1 D, TRANSDERMAL
     Route: 062
     Dates: start: 20071124, end: 20080126
  3. NEUPRO [Suspect]
     Indication: PARKINSON'S DISEASE
     Dosage: 2MG/24H, 1 IN 1 D, TRANSDERMAL : 4MG/24H, 1 IN 1 D, TRANSDERMAL : 10MG/24H, 1 IN 1 D, TRANSDERMAL
     Route: 062
     Dates: start: 20080229, end: 20080314
  4. NEUPRO [Suspect]
     Dosage: 6MG/24H, 1 IN 1 D, TRANSDERMAL : 12MG/24H, 1 IN 1 D, TRANSDERMAL : 10MG/24H, 1 IN 1 D, TRANSDERMAL
     Route: 062
     Dates: start: 20080127, end: 20080228
  5. NEUPRO [Suspect]
     Dosage: 6MG/24H, 1 IN 1 D, TRANSDERMAL : 12MG/24H, 1 IN 1 D, TRANSDERMAL : 10MG/24H, 1 IN 1 D, TRANSDERMAL
     Route: 062
     Dates: start: 20080315, end: 20080409
  6. NEUPRO [Suspect]
     Dosage: 6MG/24H, 1 IN 1 D, TRANSDERMAL : 12MG/24H, 1 IN 1 D, TRANSDERMAL : 10MG/24H, 1 IN 1 D, TRANSDERMAL
     Route: 062
     Dates: start: 20080410
  7. AZILECT [Concomitant]

REACTIONS (3)
  - OVERDOSE [None]
  - PHARMACEUTICAL PRODUCT COMPLAINT [None]
  - VOMITING [None]
